FAERS Safety Report 18851398 (Version 1)
Quarter: 2021Q1

REPORT INFORMATION
  Report Type: Spontaneous
  Country: US (occurrence: US)
  Receive Date: 20210204
  Receipt Date: 20210204
  Transmission Date: 20210420
  Serious: Yes (Other)
  Sender: FDA-Public Use
  Company Number: None

PATIENT
  Age: 56 Year
  Sex: Male
  Weight: 108 kg

DRUGS (7)
  1. SULFAMETHOXAZOLE?TRIMETHOPRIM [Concomitant]
     Active Substance: SULFAMETHOXAZOLE\TRIMETHOPRIM
     Dates: start: 20210204
  2. NAPROXEN. [Concomitant]
     Active Substance: NAPROXEN
     Dates: start: 20200525
  3. NIVOLUMAB [Suspect]
     Active Substance: NIVOLUMAB
     Dosage: ?          OTHER FREQUENCY:EVERY 28 DAYS;?
     Route: 042
     Dates: start: 20200211, end: 20210204
  4. ATORVASTATIN [Concomitant]
     Active Substance: ATORVASTATIN
     Dates: start: 20190101
  5. PREDNISONE. [Concomitant]
     Active Substance: PREDNISONE
     Dates: start: 20210204
  6. AMLODIPINE [Concomitant]
     Active Substance: AMLODIPINE BESYLATE
     Dates: start: 20110101
  7. OXYCODONE [Concomitant]
     Active Substance: OXYCODONE
     Dates: start: 20200728

REACTIONS (7)
  - Arthralgia [None]
  - Alanine aminotransferase increased [None]
  - Immune-mediated hepatic disorder [None]
  - Aspartate aminotransferase increased [None]
  - Liver function test increased [None]
  - Alcohol use [None]
  - SARS-CoV-2 test positive [None]

NARRATIVE: CASE EVENT DATE: 20210204
